FAERS Safety Report 8552644 (Version 2)
Quarter: 2013Q2

REPORT INFORMATION
  Report Type: Spontaneous
  Country: US (occurrence: None)
  Receive Date: 20120327
  Receipt Date: 20120709
  Transmission Date: 20140414
  Serious: Yes (Other)
  Sender: FDA-Public Use
  Company Number: PHHY2011US09133

PATIENT
  Sex: 0

DRUGS (1)
  1. GLEEVEC [Suspect]
     Dosage: 800 MG, DAILY

REACTIONS (1)
  - THERAPY RESPONDER [None]
